FAERS Safety Report 19981098 (Version 1)
Quarter: 2021Q4

REPORT INFORMATION
  Report Type: Spontaneous
  Country: FR (occurrence: FR)
  Receive Date: 20211021
  Receipt Date: 20211021
  Transmission Date: 20220303
  Serious: Yes (Other)
  Sender: FDA-Public Use
  Company Number: FR-VALIDUS PHARMACEUTICALS LLC-FR-VDP-2021-004824

PATIENT
  Age: 76 Year
  Sex: Male
  Weight: 84 kg

DRUGS (8)
  1. FUROSEMIDE [Suspect]
     Active Substance: FUROSEMIDE
     Indication: Cardiac failure
     Dosage: 20 MG, QD (IV NOS)
     Route: 042
     Dates: start: 20200807, end: 20200914
  2. HYDROCORTISONE ACETATE [Suspect]
     Active Substance: HYDROCORTISONE ACETATE
     Indication: Staphylococcal sepsis
     Dosage: 20 MG, QD
     Route: 048
     Dates: start: 20200807, end: 20200914
  3. GENTAMICIN SULFATE [Suspect]
     Active Substance: GENTAMICIN SULFATE
     Indication: Staphylococcal sepsis
     Dosage: 90 MG, QD (IV NOS)
     Route: 042
     Dates: start: 20200810, end: 20200813
  4. PIPERACILLIN SODIUM\TAZOBACTAM SODIUM [Suspect]
     Active Substance: PIPERACILLIN SODIUM\TAZOBACTAM SODIUM
     Indication: Staphylococcal sepsis
     Dosage: 4 G, QD (IV NOS)
     Route: 042
     Dates: start: 20200807, end: 20200809
  5. CLOXACILLIN SODIUM [Suspect]
     Active Substance: CLOXACILLIN SODIUM
     Indication: Staphylococcal sepsis
     Dosage: 12 G, QD (IVNOS)
     Route: 042
     Dates: start: 20200810, end: 20200909
  6. VANCOMYCIN [Suspect]
     Active Substance: VANCOMYCIN
     Indication: Staphylococcal sepsis
     Dosage: 2 G, QD (IV NOS)
     Route: 042
     Dates: start: 20200807, end: 20200809
  7. VANCOMYCIN [Suspect]
     Active Substance: VANCOMYCIN
     Indication: Staphylococcal sepsis
     Dosage: UNK (IV NOS)
     Route: 042
     Dates: start: 20200807, end: 20200809
  8. HYDROCORTISONE [Suspect]
     Active Substance: HYDROCORTISONE
     Indication: Staphylococcal sepsis
     Dosage: 20 MG, QD
     Route: 042
     Dates: start: 20200807, end: 20200914

REACTIONS (1)
  - Hyperkalaemia [Recovered/Resolved]
